FAERS Safety Report 6962598-9 (Version None)
Quarter: 2010Q3

REPORT INFORMATION
  Report Type: 
  Country: None (occurrence: None)
  Receive Date: 20100902
  Receipt Date: 20100723
  Transmission Date: 20110219
  Serious: Yes (Other)
  Sender: FDA-Public Use
  Company Number: US-BAXTER-2008BH001014

PATIENT
  Age: 43 Year
  Sex: Female
  Weight: 103 kg

DRUGS (2)
  1. HEPARIN SODIUM INJECTION [Suspect]
     Indication: PROPHYLAXIS
     Route: 033
     Dates: end: 20080119
  2. DIANEAL [Concomitant]
     Indication: HAEMODIALYSIS
     Route: 065
     Dates: start: 20070724, end: 20080123

REACTIONS (12)
  - DIARRHOEA [None]
  - DYSPNOEA [None]
  - FLUSHING [None]
  - HAEMODIALYSIS [None]
  - HEADACHE [None]
  - MALAISE [None]
  - NAUSEA [None]
  - PALLOR [None]
  - PERITONITIS [None]
  - RESTLESSNESS [None]
  - SOMNOLENCE [None]
  - VOMITING [None]
